FAERS Safety Report 8372085-1 (Version None)
Quarter: 2012Q2

REPORT INFORMATION
  Report Type: 
  Country: None (occurrence: None)
  Receive Date: 20120520
  Receipt Date: 20120419
  Transmission Date: 20120825
  Serious: Yes (Hospitalization, Other)
  Sender: FDA-Public Use
  Company Number: PHHO2008US14660

PATIENT
  Sex: Male
  Weight: 84.3 kg

DRUGS (34)
  1. IMATINIB MESYLATE [Suspect]
     Dosage: NO TREATMENT
     Dates: start: 20081221, end: 20081223
  2. ALLOPURINOL [Concomitant]
  3. FUROSEMIDE [Concomitant]
  4. POTASSIUM CHLORIDE [Concomitant]
  5. FLOMAX [Concomitant]
  6. PRILOSEC [Concomitant]
  7. MULTI-VITAMINS [Concomitant]
  8. ASCORBIC ACID [Concomitant]
  9. PACLITAXEL [Concomitant]
  10. AMIODARONE HCL [Suspect]
  11. NORVASC [Concomitant]
  12. IMATINIB MESYLATE [Suspect]
     Dosage: 400 MG, QD
     Dates: start: 20080502
  13. DIOVAN [Concomitant]
  14. LASIX [Concomitant]
  15. ASPIRIN [Concomitant]
  16. VICODIN [Concomitant]
  17. LIDODERM [Concomitant]
  18. COMPAZINE [Concomitant]
  19. IMATINIB MESYLATE [Suspect]
     Dosage: 400 MG
     Route: 048
     Dates: start: 20081224
  20. SYNTHROID [Concomitant]
  21. LIPITOR [Concomitant]
  22. NIASPAN [Concomitant]
  23. AMLODIPINE BESYLATE [Concomitant]
  24. BYSTOLIC [Concomitant]
  25. CARDURA [Concomitant]
  26. TASIGNA [Suspect]
     Indication: CHRONIC MYELOID LEUKAEMIA
     Dosage: 800 MG, QD
     Route: 048
     Dates: start: 20090619, end: 20090624
  27. IMATINIB MESYLATE [Suspect]
     Indication: CHRONIC MYELOID LEUKAEMIA
     Dosage: 400 MG, QD
     Route: 048
     Dates: start: 20071116
  28. OMEPRAZOLE [Concomitant]
  29. IMATINIB MESYLATE [Suspect]
     Dosage: NO TREATMENT
     Dates: start: 20080424, end: 20080501
  30. CHEMOTHERAPEUTICS NOS [Suspect]
  31. TOPROL-XL [Concomitant]
  32. NEURONTIN [Concomitant]
  33. MEGACE [Concomitant]
  34. CLONIDINE [Concomitant]

REACTIONS (56)
  - CHEST PAIN [None]
  - ASTHENIA [None]
  - WEIGHT DECREASED [None]
  - FATIGUE [None]
  - SINUS ARRHYTHMIA [None]
  - COUGH [None]
  - OEDEMA PERIPHERAL [None]
  - BLOOD PRESSURE ABNORMAL [None]
  - CHRONIC MYELOID LEUKAEMIA [None]
  - SEPSIS [None]
  - LUNG INFILTRATION [None]
  - SCAN MYOCARDIAL PERFUSION ABNORMAL [None]
  - GASTRITIS ATROPHIC [None]
  - ANAEMIA [None]
  - THROMBOCYTOPENIA [None]
  - DEEP VEIN THROMBOSIS [None]
  - LEFT VENTRICULAR HYPERTROPHY [None]
  - ELECTROCARDIOGRAM QT PROLONGED [None]
  - BLOOD UREA INCREASED [None]
  - RALES [None]
  - PNEUMONIA [None]
  - DYSPHAGIA [None]
  - POST HERPETIC NEURALGIA [None]
  - ABDOMINAL PAIN UPPER [None]
  - PERFORMANCE STATUS DECREASED [None]
  - URINARY HESITATION [None]
  - PYREXIA [None]
  - LUNG DISORDER [None]
  - RESPIRATORY DISTRESS [None]
  - CHEST DISCOMFORT [None]
  - BETA HAEMOLYTIC STREPTOCOCCAL INFECTION [None]
  - RENAL FAILURE CHRONIC [None]
  - PLEURAL EFFUSION [None]
  - BLOOD CREATININE INCREASED [None]
  - CARDIOMYOPATHY [None]
  - BREATH SOUNDS ABNORMAL [None]
  - MYOCARDIAL ISCHAEMIA [None]
  - ATELECTASIS [None]
  - LETHARGY [None]
  - HYPOPERFUSION [None]
  - JUGULAR VEIN DISTENSION [None]
  - OESOPHAGITIS [None]
  - HAEMOLYTIC URAEMIC SYNDROME [None]
  - CONSTIPATION [None]
  - CARDIAC FAILURE CONGESTIVE [None]
  - PULMONARY OEDEMA [None]
  - JOINT INJURY [None]
  - DEHYDRATION [None]
  - VENTRICULAR HYPOKINESIA [None]
  - BIOPSY MUCOSA ABNORMAL [None]
  - DYSPEPSIA [None]
  - DYSPNOEA [None]
  - FALL [None]
  - EJECTION FRACTION DECREASED [None]
  - ERYTHEMA [None]
  - HERPES ZOSTER [None]
